FAERS Safety Report 25215779 (Version 6)
Quarter: 2025Q3

REPORT INFORMATION
  Report Type: Spontaneous
  Country: EU (occurrence: EU)
  Receive Date: 20250418
  Receipt Date: 20250818
  Transmission Date: 20251020
  Serious: Yes (Hospitalization, Other)
  Sender: MYLAN
  Company Number: EU-SUN PHARMACEUTICAL INDUSTRIES LTD-2025RR-502850

PATIENT
  Age: 84 Year
  Sex: Female

DRUGS (72)
  1. TRAMADOL [Suspect]
     Active Substance: TRAMADOL
     Indication: Pain
  2. TRAMADOL [Suspect]
     Active Substance: TRAMADOL
     Route: 065
  3. TRAMADOL [Suspect]
     Active Substance: TRAMADOL
     Route: 065
  4. TRAMADOL [Suspect]
     Active Substance: TRAMADOL
  5. IBUPROFEN [Suspect]
     Active Substance: IBUPROFEN
     Indication: Pain
  6. IBUPROFEN [Suspect]
     Active Substance: IBUPROFEN
     Indication: Pain management
     Route: 048
  7. IBUPROFEN [Suspect]
     Active Substance: IBUPROFEN
     Indication: Analgesic therapy
     Route: 048
  8. IBUPROFEN [Suspect]
     Active Substance: IBUPROFEN
  9. PREGABALIN [Suspect]
     Active Substance: PREGABALIN
     Indication: Anxiety
     Dosage: 25 MILLIGRAM, BID, IN THE MORNING AND AT NIGHT STARTED ON THE FIRST DAY
  10. PREGABALIN [Suspect]
     Active Substance: PREGABALIN
     Indication: Depression
     Dosage: 25 MILLIGRAM, BID, IN THE MORNING AND AT NIGHT STARTED ON THE FIRST DAY
     Route: 048
  11. PREGABALIN [Suspect]
     Active Substance: PREGABALIN
     Indication: Analgesic therapy
     Dosage: 25 MILLIGRAM, BID, IN THE MORNING AND AT NIGHT STARTED ON THE FIRST DAY
     Route: 048
  12. PREGABALIN [Suspect]
     Active Substance: PREGABALIN
     Dosage: 25 MILLIGRAM, BID, IN THE MORNING AND AT NIGHT STARTED ON THE FIRST DAY
  13. FOLIC ACID [Suspect]
     Active Substance: FOLIC ACID
     Dosage: 15 MILLIGRAM, QW
  14. FOLIC ACID [Suspect]
     Active Substance: FOLIC ACID
     Dosage: 15 MILLIGRAM, QW
     Route: 048
  15. FOLIC ACID [Suspect]
     Active Substance: FOLIC ACID
     Dosage: 15 MILLIGRAM, QW
     Route: 048
  16. FOLIC ACID [Suspect]
     Active Substance: FOLIC ACID
     Dosage: 15 MILLIGRAM, QW
  17. ACETAMINOPHEN [Suspect]
     Active Substance: ACETAMINOPHEN
     Indication: Pain
  18. ACETAMINOPHEN [Suspect]
     Active Substance: ACETAMINOPHEN
     Indication: Analgesic therapy
     Route: 065
  19. ACETAMINOPHEN [Suspect]
     Active Substance: ACETAMINOPHEN
     Route: 065
  20. ACETAMINOPHEN [Suspect]
     Active Substance: ACETAMINOPHEN
  21. ACETAMINOPHEN\TRAMADOL [Suspect]
     Active Substance: ACETAMINOPHEN\TRAMADOL
     Indication: Pain management
     Dosage: 4 DOSAGE FORM, QD, (2600 MG/300 MG (650 MG/75 MG, 4 IN 1D)
  22. ACETAMINOPHEN\TRAMADOL [Suspect]
     Active Substance: ACETAMINOPHEN\TRAMADOL
     Indication: Analgesic therapy
     Dosage: 4 DOSAGE FORM, QD, (2600 MG/300 MG (650 MG/75 MG, 4 IN 1D)
     Route: 048
  23. ACETAMINOPHEN\TRAMADOL [Suspect]
     Active Substance: ACETAMINOPHEN\TRAMADOL
     Dosage: 4 DOSAGE FORM, QD, (2600 MG/300 MG (650 MG/75 MG, 4 IN 1D)
     Route: 048
  24. ACETAMINOPHEN\TRAMADOL [Suspect]
     Active Substance: ACETAMINOPHEN\TRAMADOL
     Dosage: 4 DOSAGE FORM, QD, (2600 MG/300 MG (650 MG/75 MG, 4 IN 1D)
  25. NIMESULIDE [Suspect]
     Active Substance: NIMESULIDE
     Indication: Pain
  26. NIMESULIDE [Suspect]
     Active Substance: NIMESULIDE
     Indication: Pain management
     Route: 048
  27. NIMESULIDE [Suspect]
     Active Substance: NIMESULIDE
     Indication: Analgesic therapy
     Route: 048
  28. NIMESULIDE [Suspect]
     Active Substance: NIMESULIDE
  29. MIRTAZAPINE [Concomitant]
     Active Substance: MIRTAZAPINE
     Indication: Anxiety
     Dosage: 15 MILLIGRAM, QD, 15 MG, IN THE EVENING ON THE THIRD DAY OF TREATMENT
  30. MIRTAZAPINE [Concomitant]
     Active Substance: MIRTAZAPINE
     Indication: Depression
     Dosage: 15 MILLIGRAM, QD, 15 MG, IN THE EVENING ON THE THIRD DAY OF TREATMENT
     Route: 048
  31. MIRTAZAPINE [Concomitant]
     Active Substance: MIRTAZAPINE
     Dosage: 15 MILLIGRAM, QD, 15 MG, IN THE EVENING ON THE THIRD DAY OF TREATMENT
     Route: 048
  32. MIRTAZAPINE [Concomitant]
     Active Substance: MIRTAZAPINE
     Dosage: 15 MILLIGRAM, QD, 15 MG, IN THE EVENING ON THE THIRD DAY OF TREATMENT
  33. KETOPROFEN [Concomitant]
     Active Substance: KETOPROFEN
     Indication: Pain
  34. KETOPROFEN [Concomitant]
     Active Substance: KETOPROFEN
     Indication: Pain management
     Route: 065
  35. KETOPROFEN [Concomitant]
     Active Substance: KETOPROFEN
     Indication: Analgesic therapy
     Route: 065
  36. KETOPROFEN [Concomitant]
     Active Substance: KETOPROFEN
     Indication: Arthralgia
  37. METHOTREXATE [Concomitant]
     Active Substance: METHOTREXATE
     Indication: Pain
     Dosage: 15 MILLIGRAM, WEEKLY
  38. METHOTREXATE [Concomitant]
     Active Substance: METHOTREXATE
     Indication: Rheumatoid arthritis
     Dosage: 15 MILLIGRAM, WEEKLY
     Route: 058
  39. METHOTREXATE [Concomitant]
     Active Substance: METHOTREXATE
     Dosage: 15 MILLIGRAM, WEEKLY
     Route: 058
  40. METHOTREXATE [Concomitant]
     Active Substance: METHOTREXATE
     Dosage: 15 MILLIGRAM, WEEKLY
  41. METHYLPREDNISOLONE [Concomitant]
     Active Substance: METHYLPREDNISOLONE
     Indication: Pain
  42. METHYLPREDNISOLONE [Concomitant]
     Active Substance: METHYLPREDNISOLONE
     Indication: Rheumatoid arthritis
     Route: 048
  43. METHYLPREDNISOLONE [Concomitant]
     Active Substance: METHYLPREDNISOLONE
     Route: 048
  44. METHYLPREDNISOLONE [Concomitant]
     Active Substance: METHYLPREDNISOLONE
  45. GLUCOSAMINE [Concomitant]
     Active Substance: GLUCOSAMINE
  46. GLUCOSAMINE [Concomitant]
     Active Substance: GLUCOSAMINE
     Route: 065
  47. GLUCOSAMINE [Concomitant]
     Active Substance: GLUCOSAMINE
     Route: 065
  48. GLUCOSAMINE [Concomitant]
     Active Substance: GLUCOSAMINE
  49. CHONDROITIN [Concomitant]
     Active Substance: CHONDROITIN
  50. CHONDROITIN [Concomitant]
     Active Substance: CHONDROITIN
     Route: 065
  51. CHONDROITIN [Concomitant]
     Active Substance: CHONDROITIN
     Route: 065
  52. CHONDROITIN [Concomitant]
     Active Substance: CHONDROITIN
  53. TAPENTADOL [Concomitant]
     Active Substance: TAPENTADOL
     Indication: Analgesic therapy
     Dosage: 50 MILLIGRAM, BID (INITIALLY 50 MG EVERY 12 H ORALLY)
  54. TAPENTADOL [Concomitant]
     Active Substance: TAPENTADOL
     Indication: Arthralgia
     Dosage: 50 MILLIGRAM, BID (INITIALLY 50 MG EVERY 12 H ORALLY)
  55. TAPENTADOL [Concomitant]
     Active Substance: TAPENTADOL
     Dosage: 50 MILLIGRAM, BID (INITIALLY 50 MG EVERY 12 H ORALLY)
     Route: 048
  56. TAPENTADOL [Concomitant]
     Active Substance: TAPENTADOL
     Dosage: 50 MILLIGRAM, BID (INITIALLY 50 MG EVERY 12 H ORALLY)
     Route: 048
  57. TAPENTADOL [Concomitant]
     Active Substance: TAPENTADOL
     Dosage: 100 MILLIGRAM, BID (AND THEN AFTER 3 DAYS 100 MG EVERY 12 H)
  58. TAPENTADOL [Concomitant]
     Active Substance: TAPENTADOL
     Dosage: 100 MILLIGRAM, BID (AND THEN AFTER 3 DAYS 100 MG EVERY 12 H)
  59. TAPENTADOL [Concomitant]
     Active Substance: TAPENTADOL
     Dosage: 100 MILLIGRAM, BID (AND THEN AFTER 3 DAYS 100 MG EVERY 12 H)
     Route: 048
  60. TAPENTADOL [Concomitant]
     Active Substance: TAPENTADOL
     Dosage: 100 MILLIGRAM, BID (AND THEN AFTER 3 DAYS 100 MG EVERY 12 H)
     Route: 048
  61. FOLIC ACID [Concomitant]
     Active Substance: FOLIC ACID
     Indication: Supplementation therapy
     Dosage: 15 MILLIGRAM, QW
  62. FOLIC ACID [Concomitant]
     Active Substance: FOLIC ACID
     Dosage: 15 MILLIGRAM, QW
     Route: 048
  63. FOLIC ACID [Concomitant]
     Active Substance: FOLIC ACID
     Dosage: 15 MILLIGRAM, QW
     Route: 048
  64. FOLIC ACID [Concomitant]
     Active Substance: FOLIC ACID
     Dosage: 15 MILLIGRAM, QW
  65. VITAMIN B12 [Concomitant]
     Active Substance: CYANOCOBALAMIN
     Indication: Vitamin B12 deficiency
  66. VITAMIN B12 [Concomitant]
     Active Substance: CYANOCOBALAMIN
     Route: 030
  67. VITAMIN B12 [Concomitant]
     Active Substance: CYANOCOBALAMIN
     Route: 030
  68. VITAMIN B12 [Concomitant]
     Active Substance: CYANOCOBALAMIN
  69. VITAMIN D3 [Concomitant]
     Active Substance: CHOLECALCIFEROL
     Indication: Vitamin D deficiency
  70. VITAMIN D3 [Concomitant]
     Active Substance: CHOLECALCIFEROL
     Route: 048
  71. VITAMIN D3 [Concomitant]
     Active Substance: CHOLECALCIFEROL
     Route: 048
  72. VITAMIN D3 [Concomitant]
     Active Substance: CHOLECALCIFEROL

REACTIONS (13)
  - Abdominal pain upper [Recovering/Resolving]
  - Dyspepsia [Recovering/Resolving]
  - Constipation [Recovering/Resolving]
  - Dizziness [Recovering/Resolving]
  - General physical health deterioration [Recovered/Resolved]
  - Pain [Unknown]
  - Urinary tract infection [Unknown]
  - Drug ineffective [Unknown]
  - Therapeutic product effect incomplete [Unknown]
  - Nausea [Recovering/Resolving]
  - Vomiting [Recovered/Resolved]
  - Inadequate analgesia [Unknown]
  - Product use issue [Recovered/Resolved]
